FAERS Safety Report 9110007 (Version 5)
Quarter: 2013Q2

REPORT INFORMATION
  Report Type: Spontaneous
  Country: US (occurrence: US)
  Receive Date: 20130222
  Receipt Date: 20130502
  Transmission Date: 20140414
  Serious: Yes (Other)
  Sender: FDA-Public Use
  Company Number: US-PFIZER INC-2013066611

PATIENT
  Age: 67 Year
  Sex: Female
  Weight: 75.28 kg

DRUGS (17)
  1. NORVASC [Suspect]
     Indication: HYPERTENSION
     Dosage: 10 MG, 1X/DAY
     Route: 048
     Dates: start: 1997
  2. AMLODIPINE BESILATE [Suspect]
     Indication: HYPERTENSION
     Dosage: UNK
  3. NITROSTAT [Concomitant]
     Dosage: 0.4 MG, UNK
     Route: 060
  4. MAGNESIUM CITRATE [Concomitant]
     Dosage: UNK
     Route: 048
  5. VITAMIN B12 [Concomitant]
     Dosage: 1000 UG/ML, UNK
  6. K-TAB [Concomitant]
     Dosage: 10 MEQ, UNK
     Route: 048
  7. MIRALAX [Concomitant]
     Dosage: 17 G, UNK
     Route: 048
  8. FLUOCINONIDE [Concomitant]
     Dosage: 0.05 %, UNK
     Route: 061
  9. OXYBUTYNIN CHLORIDE [Concomitant]
     Dosage: 5 MG, UNK
     Route: 048
  10. LOVASTATIN [Concomitant]
     Dosage: 20 MG, UNK
     Route: 048
  11. ALENDRONATE [Concomitant]
     Indication: ARTHRITIS
     Dosage: 70 MG, UNK
     Route: 048
  12. ALENDRONATE [Concomitant]
     Indication: OSTEOPOROSIS
  13. FUROSEMIDE [Concomitant]
     Dosage: 20 MG, UNK
     Route: 048
  14. TRIAMCINOLONE ACETONIDE [Concomitant]
     Dosage: 0.1 %, UNK
     Route: 061
  15. DICYCLOMINE [Concomitant]
     Dosage: 20 MG, UNK
     Route: 048
  16. CITRUCEL [Concomitant]
     Dosage: UNK
     Route: 048
  17. ASPIRIN [Concomitant]
     Dosage: 81 MG, UNK
     Route: 048

REACTIONS (29)
  - Fall [Unknown]
  - Foot fracture [Unknown]
  - Foot fracture [Recovering/Resolving]
  - Neoplasm malignant [Unknown]
  - Transient ischaemic attack [Unknown]
  - Cerebral thrombosis [Unknown]
  - Epilepsy [Unknown]
  - Optic atrophy [Unknown]
  - Exfoliation syndrome [Unknown]
  - Ingrowing nail [Unknown]
  - Urinary incontinence [Unknown]
  - Osteoarthritis [Unknown]
  - Hyperlipidaemia [Unknown]
  - Migraine [Unknown]
  - Obesity [Unknown]
  - Gastrooesophageal reflux disease [Unknown]
  - Chest pain [Unknown]
  - Vitamin B12 deficiency [Unknown]
  - Clonus [Unknown]
  - Constipation [Unknown]
  - Cataract [Unknown]
  - Gait disturbance [Unknown]
  - Abdominal pain [Unknown]
  - Hypersensitivity [Unknown]
  - Muscular weakness [Unknown]
  - Memory impairment [Unknown]
  - Alopecia [Unknown]
  - Syncope [Unknown]
  - Joint injury [Unknown]
